FAERS Safety Report 9870426 (Version 2)
Quarter: 2014Q1

REPORT INFORMATION
  Report Type: Spontaneous
  Country: KR (occurrence: KR)
  Receive Date: 20140205
  Receipt Date: 20140212
  Transmission Date: 20141002
  Serious: Yes (Other)
  Sender: FDA-Public Use
  Company Number: KR-SA-2014SA011760

PATIENT
  Age: 43 Year
  Sex: Female

DRUGS (3)
  1. ELOXATIN [Suspect]
     Indication: OVARIAN CANCER
     Route: 065
  2. ELOXATIN [Suspect]
     Indication: OVARIAN CANCER
     Route: 065
  3. CAPECITABINE [Suspect]
     Indication: OVARIAN CANCER
     Route: 065

REACTIONS (5)
  - Ocular toxicity [Recovering/Resolving]
  - Vision blurred [Recovering/Resolving]
  - Visual field defect [Recovering/Resolving]
  - Retinogram abnormal [Recovering/Resolving]
  - Chromatopsia [Recovering/Resolving]
